FAERS Safety Report 16179390 (Version 1)
Quarter: 2019Q2

REPORT INFORMATION
  Report Type: Spontaneous
  Country: US (occurrence: US)
  Receive Date: 20190410
  Receipt Date: 20190410
  Transmission Date: 20190711
  Serious: No
  Sender: FDA-Public Use
  Company Number: US-ELI_LILLY_AND_COMPANY-US201904005383

PATIENT
  Sex: Male

DRUGS (6)
  1. TRULICITY [Suspect]
     Active Substance: DULAGLUTIDE
     Indication: WEIGHT INCREASED
     Dosage: 0.75 MG, UNKNOWN
     Route: 065
     Dates: start: 201812, end: 201902
  2. TRULICITY [Suspect]
     Active Substance: DULAGLUTIDE
     Indication: WEIGHT INCREASED
     Dosage: 1.5 MG, UNKNOWN
     Route: 065
     Dates: start: 201902
  3. METFORMIN [Concomitant]
     Active Substance: METFORMIN HYDROCHLORIDE
     Indication: WEIGHT INCREASED
     Dosage: 500 MG, TID
  4. PHENDIMETRAZIN TAR [Concomitant]
     Indication: WEIGHT INCREASED
     Dosage: 35 UNK, DAILY
  5. LASIX P [Concomitant]
     Active Substance: FUROSEMIDE
     Indication: WEIGHT INCREASED
     Dosage: 20 MG, DAILY
  6. ACARBOSE. [Concomitant]
     Active Substance: ACARBOSE
     Indication: WEIGHT INCREASED
     Dosage: 100 MG, TID

REACTIONS (5)
  - Headache [Recovering/Resolving]
  - Off label use [Unknown]
  - Stress [Unknown]
  - Neck pain [Recovering/Resolving]
  - Epistaxis [Unknown]

NARRATIVE: CASE EVENT DATE: 201812
